FAERS Safety Report 4478374-5 (Version None)
Quarter: 2004Q4

REPORT INFORMATION
  Report Type: 
  Country: None (occurrence: None)
  Receive Date: 20041019
  Receipt Date: 20040930
  Transmission Date: 20050328
  Serious: Yes (Other)
  Sender: FDA-Public Use
  Company Number: FI-ROCHE-382005

PATIENT
  Age: 81 Year
  Sex: Male

DRUGS (6)
  1. XELODA [Suspect]
     Indication: COLORECTAL CANCER
     Route: 048
     Dates: start: 20040504, end: 20040518
  2. HYDREX (FINLAND) [Concomitant]
     Indication: HYPERTENSION
     Route: 048
  3. ENALAPRIL MALEATE [Concomitant]
     Indication: HYPERTENSION
     Route: 048
  4. PRAVACHOL [Concomitant]
     Route: 048
  5. METOPROLOLI SUCCINAS [Concomitant]
     Indication: HYPERTENSION
     Route: 048
  6. MAREVAN [Concomitant]
     Dosage: DOSES REPORTED AS VARIOUS DOSES, MAINLY 0-1 TABLET/DAY.

REACTIONS (4)
  - ABDOMINAL PAIN UPPER [None]
  - BLOOD AMYLASE INCREASED [None]
  - BLOOD BILIRUBIN INCREASED [None]
  - HEPATIC ENZYME INCREASED [None]
